FAERS Safety Report 4778714-3 (Version None)
Quarter: 2005Q3

REPORT INFORMATION
  Report Type: 
  Country: None (occurrence: None)
  Receive Date: 20050926
  Receipt Date: 20050616
  Transmission Date: 20060218
  Serious: Yes (Other)
  Sender: FDA-Public Use
  Company Number: SE-ROCHE-407993

PATIENT
  Age: 42 Year
  Sex: Male

DRUGS (2)
  1. LARIAM [Suspect]
     Indication: MALARIA PROPHYLAXIS
     Route: 048
     Dates: start: 20041217, end: 20041225
  2. NORFLOXACIN [Concomitant]

REACTIONS (6)
  - AMNESIA [None]
  - CEREBRAL DISORDER [None]
  - CONVULSION [None]
  - DISTURBANCE IN ATTENTION [None]
  - FATIGUE [None]
  - VISUAL DISTURBANCE [None]
